FAERS Safety Report 22155492 (Version 1)
Quarter: 2023Q1

REPORT INFORMATION
  Report Type: Spontaneous
  Country: US (occurrence: US)
  Receive Date: 20230330
  Receipt Date: 20230330
  Transmission Date: 20230418
  Serious: No
  Sender: FDA-Public Use
  Company Number: US-drreddys-SPO/USA/23/0161084

PATIENT
  Age: 17 Year

DRUGS (2)
  1. ACCUTANE [Suspect]
     Active Substance: ISOTRETINOIN
     Indication: Product used for unknown indication
  2. ACCUTANE [Suspect]
     Active Substance: ISOTRETINOIN
     Dates: start: 20220816, end: 20221116

REACTIONS (4)
  - Superficial injury of eye [Unknown]
  - Hordeolum [Unknown]
  - Dry eye [Unknown]
  - Ocular hyperaemia [Unknown]

NARRATIVE: CASE EVENT DATE: 20220915
